FAERS Safety Report 8905357 (Version 2)
Quarter: 2013Q2

REPORT INFORMATION
  Report Type: Spontaneous
  Country: US (occurrence: US)
  Receive Date: 20121112
  Receipt Date: 20130611
  Transmission Date: 20140414
  Serious: Yes (Other)
  Sender: FDA-Public Use
  Company Number: US-BAYER-2012-117092

PATIENT
  Age: 40 Year
  Sex: Female

DRUGS (18)
  1. YASMIN [Suspect]
  2. IRON [Concomitant]
     Indication: ANAEMIA
     Dosage: UNK UNK, QD
     Route: 048
  3. MULTIVIT [Concomitant]
     Dosage: DAILY
     Route: 048
  4. VITAMIN D [Concomitant]
     Dosage: DAILY
     Route: 048
  5. CALCIUM [Concomitant]
     Dosage: DAILY
     Route: 048
  6. FISH OIL [Concomitant]
     Dosage: DAILY
     Route: 048
  7. B-COMPLEX [Concomitant]
     Dosage: DAILY
     Route: 048
  8. C-VITAMIN [Concomitant]
     Dosage: DAILY
     Route: 048
  9. ANCEF [Concomitant]
     Indication: PREMEDICATION
     Dosage: 1 G, UNK
  10. ZOFRAN [Concomitant]
     Indication: NAUSEA
     Dosage: 4 MG, UNK
     Route: 042
  11. FENTANYL [Concomitant]
     Dosage: 50 ?G, UNK
     Route: 042
  12. TORADOL [Concomitant]
     Dosage: 30 MG, UNK
     Route: 042
  13. MOTRIN [Concomitant]
  14. PERCOCET [Concomitant]
  15. DEMEROL [Concomitant]
  16. PHENERGAN [Concomitant]
  17. IBUPROFEN [Concomitant]
     Dosage: UNK
     Dates: start: 20080401
  18. ACETAMINOPHEN W/OXYCODONE [Concomitant]
     Dosage: UNK
     Dates: start: 20080401

REACTIONS (1)
  - Deep vein thrombosis [Recovered/Resolved]
